FAERS Safety Report 7950193-4 (Version None)
Quarter: 2011Q4

REPORT INFORMATION
  Report Type: 
  Country: None (occurrence: None)
  Receive Date: 20111130
  Receipt Date: 20111021
  Transmission Date: 20120403
  Serious: Yes (Hospitalization)
  Sender: FDA-Public Use
  Company Number: PHHO2011FR02697

PATIENT
  Sex: Male
  Weight: 74 kg

DRUGS (4)
  1. LEVOTHYROXINE SODIUM [Suspect]
  2. RAD 666 / RAD 001A [Suspect]
     Indication: RENAL TRANSPLANT
     Dosage: 1 MG IN MORMINING + 0.75 MG IN EVENING
     Route: 048
     Dates: start: 20100514
  3. PREDNISOLONE [Concomitant]
     Indication: RENAL TRANSPLANT
     Dosage: 10 MG, UNK
     Route: 048
     Dates: start: 20100514
  4. MYCOPHENOLATE MOFETIL (CELLCEPT) [Concomitant]
     Indication: RENAL TRANSPLANT
     Dosage: 500 MG, QD
     Route: 048
     Dates: start: 20100514

REACTIONS (1)
  - HYPERTHYROIDISM [None]
